FAERS Safety Report 9115359 (Version 1)
Quarter: 2013Q1

REPORT INFORMATION
  Report Type: Spontaneous
  Country: US (occurrence: None)
  Receive Date: 20130128
  Receipt Date: 20130128
  Transmission Date: 20140127
  Serious: Yes (Hospitalization)
  Sender: FDA-Public Use
  Company Number: DKLU1088172

PATIENT
  Age: 28 Month
  Sex: Male

DRUGS (1)
  1. SABRIL (TABLET) (SABRIL) (VIGABATRIN) (500 MG, TABLET) [Suspect]
     Indication: INFANTILE SPASMS
     Route: 048
     Dates: start: 20110330

REACTIONS (1)
  - Intestinal obstruction [None]
